FAERS Safety Report 7169688-9 (Version None)
Quarter: 2010Q4

REPORT INFORMATION
  Report Type: 
  Country: None (occurrence: None)
  Receive Date: 20101217
  Receipt Date: 20101207
  Transmission Date: 20110411
  Serious: Yes (Other)
  Sender: FDA-Public Use
  Company Number: CA-JNJFOC-20101203833

PATIENT
  Age: 75 Year
  Sex: Female
  Weight: 98 kg

DRUGS (16)
  1. REMICADE [Suspect]
     Indication: PSORIASIS
     Route: 042
  2. ASPIRIN [Concomitant]
  3. CITALOPRAM HYDROBROMIDE [Concomitant]
  4. LEFLUNOMIDE [Concomitant]
  5. DOVONEX [Concomitant]
     Route: 061
  6. DIPROLENE [Concomitant]
     Route: 061
  7. ATASOL [Concomitant]
     Dosage: 30 PRN
     Route: 065
  8. BISOPROLOL [Concomitant]
  9. QUININE [Concomitant]
  10. K DUR [Concomitant]
     Route: 065
  11. CALCIUM WITH VITAMIN D [Concomitant]
  12. ALPRAZOLAM [Concomitant]
  13. SALBUTAMOL [Concomitant]
     Route: 055
  14. EMO CORT [Concomitant]
     Route: 061
  15. OMEPRAZOLE [Concomitant]
     Route: 065
  16. LASIX [Concomitant]

REACTIONS (2)
  - HYPERSENSITIVITY [None]
  - PSORIASIS [None]
